FAERS Safety Report 20974375 (Version 1)
Quarter: 2022Q2

REPORT INFORMATION
  Report Type: Report from Study
  Country: US (occurrence: US)
  Receive Date: 20220617
  Receipt Date: 20220617
  Transmission Date: 20220721
  Serious: Yes (Life-Threatening, Hospitalization)
  Sender: FDA-Public Use
  Company Number: US-SERVIER-S22006201

PATIENT

DRUGS (8)
  1. PEGASPARGASE [Suspect]
     Active Substance: PEGASPARGASE
     Indication: B-cell type acute leukaemia
     Dosage: 2500 IU/M?, EVERY TWO WEEKS
     Route: 042
     Dates: start: 20210914, end: 20220523
  2. VINCRISTINE [Suspect]
     Active Substance: VINCRISTINE
     Indication: B-cell type acute leukaemia
     Dosage: 2 MG/M2, DAY 1 OF EACH 3-WEEK CYCLE
     Route: 042
     Dates: start: 20210912, end: 20220523
  3. DEXAMETHASONE [Suspect]
     Active Substance: DEXAMETHASONE
     Indication: B-cell type acute leukaemia
     Dosage: 6 MG/M2, DAYS 1-5 OF EACH 3-WEEK CYCLE
     Route: 048
     Dates: start: 20210909, end: 20220527
  4. MERCAPTOPURINE [Suspect]
     Active Substance: MERCAPTOPURINE
     Indication: B-cell type acute leukaemia
     Dosage: 50 MG/M2, DAYS 1 TO 14 OF EACH 3-WEEK CYCLE
     Route: 048
     Dates: start: 20211021, end: 20220530
  5. METHOTREXATE [Suspect]
     Active Substance: METHOTREXATE
     Indication: B-cell type acute leukaemia
     Dosage: 30 MG/M2, DAYS 1, 8 AND 15 OF EACH 3-WEEK CYCLE
     Route: 042
     Dates: start: 20211227, end: 20220530
  6. METHOTREXATE [Suspect]
     Active Substance: METHOTREXATE
     Dosage: 12 MG,  DAY 1 OF EVERY 9 WEEKS
     Route: 037
     Dates: start: 20211019, end: 20220412
  7. CYTARABINE [Suspect]
     Active Substance: CYTARABINE
     Indication: B-cell type acute leukaemia
     Dosage: 40 MG, DAY 1 OF EVERY 9 WEEK
     Route: 037
     Dates: start: 20210907, end: 20220412
  8. HYDROCORTISONE [Suspect]
     Active Substance: HYDROCORTISONE
     Indication: B-cell type acute leukaemia
     Dosage: 15 MG, DAY 1 OF EVERY 9 WEEK
     Route: 037
     Dates: start: 20211207, end: 20220412

REACTIONS (1)
  - Sepsis [Not Recovered/Not Resolved]

NARRATIVE: CASE EVENT DATE: 20220531
